FAERS Safety Report 12552914 (Version 1)
Quarter: 2016Q3

REPORT INFORMATION
  Report Type: Spontaneous
  Country: US (occurrence: None)
  Receive Date: 20160712
  Receipt Date: 20160712
  Transmission Date: 20161109
  Serious: Yes (Other)
  Sender: FDA-Public Use
  Company Number: None

PATIENT
  Age: 70 Year
  Sex: Male
  Weight: 74.6 kg

DRUGS (1)
  1. PROTAMINE SULFATE. [Suspect]
     Active Substance: PROTAMINE SULFATE
     Indication: CARDIAC OPERATION
     Route: 042
     Dates: start: 20160114, end: 20160114

REACTIONS (3)
  - Hypotension [None]
  - Hypersensitivity [None]
  - Pulmonary hypertension [None]

NARRATIVE: CASE EVENT DATE: 20160114
